FAERS Safety Report 5506214-1 (Version None)
Quarter: 2007Q4

REPORT INFORMATION
  Report Type: 
  Country: None (occurrence: None)
  Receive Date: 20071101
  Receipt Date: 20071018
  Transmission Date: 20080405
  Serious: Yes (Other)
  Sender: FDA-Public Use
  Company Number: 163379ISR

PATIENT
  Age: 51 Year
  Sex: Female

DRUGS (7)
  1. BECLOMETASONE [Suspect]
     Indication: BRONCHITIS
  2. FORASEQ    (FORMOTEROL FUMARATRE + BUDESONIDE) [Suspect]
     Indication: BRONCHITIS
     Dosage: AS REQUIRED; RESPIRATORY INHALATION
     Route: 055
  3. THEOPHYLLINE [Concomitant]
  4. ALBUTEROL [Concomitant]
  5. KETOTIFEN FUMARATE [Concomitant]
  6. SALBUTAMOL SULFATE [Concomitant]
  7. OMEPRAZOLE [Concomitant]

REACTIONS (7)
  - BRONCHITIS [None]
  - DEVICE FAILURE [None]
  - DRUG INEFFECTIVE [None]
  - INCORRECT DOSE ADMINISTERED [None]
  - OBESITY SURGERY [None]
  - PNEUMONIA [None]
  - TREMOR [None]
